FAERS Safety Report 6406963-7 (Version None)
Quarter: 2009Q4

REPORT INFORMATION
  Report Type: 
  Country: None (occurrence: None)
  Receive Date: 20091020
  Receipt Date: 20091008
  Transmission Date: 20100525
  Serious: Yes (Hospitalization)
  Sender: FDA-Public Use
  Company Number: FR-PFIZER INC-2009280123

PATIENT
  Age: 84 Year

DRUGS (7)
  1. ALDACTONE [Suspect]
     Dosage: 25 MG, 1X/DAY
     Route: 048
  2. DIGOXIN [Suspect]
     Indication: ATRIAL FIBRILLATION
     Dosage: 1 DF, 1X/DAY
     Route: 048
     Dates: end: 20090503
  3. FUROSEMIDE [Suspect]
     Dosage: 40 MG, 1X/DAY
     Route: 048
  4. LEVOTHYROXINE SODIUM [Suspect]
     Dosage: 162.5 UG, DAILY
     Route: 048
  5. PREVISCAN [Suspect]
     Dosage: 20 MG, UNK
     Route: 048
     Dates: end: 20090503
  6. TEMESTA [Suspect]
     Dosage: 2.5 MG, UNK
     Route: 048
     Dates: end: 20090503
  7. SALAZOPYRIN [Concomitant]
     Indication: RHEUMATOID ARTHRITIS
     Dosage: UNK

REACTIONS (15)
  - AMNESIA [None]
  - BLOOD PRESSURE INCREASED [None]
  - CARDIOACTIVE DRUG LEVEL ABOVE THERAPEUTIC [None]
  - CARDIOMEGALY [None]
  - COGNITIVE DISORDER [None]
  - CONFUSIONAL STATE [None]
  - DEHYDRATION [None]
  - DISORIENTATION [None]
  - DIZZINESS [None]
  - HALLUCINATION [None]
  - INTERNATIONAL NORMALISED RATIO INCREASED [None]
  - LOSS OF CONSCIOUSNESS [None]
  - ORTHOSTATIC HYPOTENSION [None]
  - OVERDOSE [None]
  - SYNCOPE [None]
